FAERS Safety Report 18876229 (Version 2)
Quarter: 2021Q2

REPORT INFORMATION
  Report Type: Spontaneous
  Country: US (occurrence: US)
  Receive Date: 20210211
  Receipt Date: 20210609
  Transmission Date: 20210717
  Serious: No
  Sender: FDA-Public Use
  Company Number: US-SA-2021SA039443

PATIENT
  Age: 53 Year
  Sex: Female

DRUGS (3)
  1. PERIDEX [CHLORHEXIDINE GLUCONATE] [Concomitant]
     Indication: STOMATITIS
  2. PERIDEX [CHLORHEXIDINE GLUCONATE] [Concomitant]
     Indication: GLOSSITIS
  3. DUPIXENT [Suspect]
     Active Substance: DUPILUMAB
     Indication: CHRONIC OBSTRUCTIVE PULMONARY DISEASE
     Dosage: 300 MG, QOW
     Route: 058
     Dates: start: 20190521

REACTIONS (4)
  - Glossitis [Recovered/Resolved]
  - Stomatitis [Recovered/Resolved]
  - Product use in unapproved indication [Unknown]
  - Product dose omission issue [Unknown]

NARRATIVE: CASE EVENT DATE: 20190521
